FAERS Safety Report 20181277 (Version 1)
Quarter: 2021Q4

REPORT INFORMATION
  Report Type: Spontaneous
  Country: US (occurrence: US)
  Receive Date: 20211214
  Receipt Date: 20211214
  Transmission Date: 20220303
  Serious: No
  Sender: FDA-Public Use
  Company Number: US-GALDERMA-US2021019014

PATIENT

DRUGS (3)
  1. DIFFERIN GEL [Suspect]
     Active Substance: ADAPALENE
     Indication: Product used for unknown indication
     Dosage: 1 DOSAGE FORM, QOD,  EVERY OTHER NIGHT OR THIRD NIGHT OR ALTERNATING NIGHTS ON ACE AND JAWLINE OR NE
  2. DIFFERIN OIL CONTROL MOISTURIZER SPF 30 [Suspect]
     Active Substance: AVOBENZONE\OCTISALATE\OCTOCRYLENE
     Indication: Product used for unknown indication
     Dosage: 1 DOSAGE FORM, QOD,EVERY OTHER NIGHT OR THIRD NIGHT OR ALTERNATING NIGHTS ON ACE AND JAWLINE OR NECK
     Route: 061
  3. COSMETICS [Suspect]
     Active Substance: COSMETICS
     Indication: Product used for unknown indication
     Dosage: 1 DOSAGE FORM, QOD,  EVERY OTHER NIGHT OR THIRD NIGHT OR ALTERNATING NIGHTS ON ACE AND JAWLINE OR NE
     Route: 061

REACTIONS (6)
  - Skin burning sensation [Unknown]
  - Skin exfoliation [Unknown]
  - Dry skin [Unknown]
  - Skin irritation [Unknown]
  - Inappropriate schedule of product administration [Recovered/Resolved]
  - Underdose [Recovered/Resolved]
